FAERS Safety Report 7118049-7 (Version None)
Quarter: 2010Q4

REPORT INFORMATION
  Report Type: 
  Country: None (occurrence: None)
  Receive Date: 20101123
  Receipt Date: 20100916
  Transmission Date: 20110411
  Serious: Yes (Hospitalization, Other)
  Sender: FDA-Public Use
  Company Number: US-BAYER-200942608NA

PATIENT
  Age: 19 Year
  Sex: Female

DRUGS (7)
  1. YAZ [Suspect]
     Indication: CONTRACEPTION
     Route: 048
     Dates: start: 20070416, end: 20090228
  2. ADVIL [Concomitant]
  3. PANTOPRAZOLE [Concomitant]
  4. HYDROCODONE [Concomitant]
  5. CLINDAMYCIN [Concomitant]
  6. NEXIUM [Concomitant]
  7. PREVACID [Concomitant]

REACTIONS (7)
  - ABDOMINAL PAIN UPPER [None]
  - BILIARY DYSKINESIA [None]
  - CHOLELITHIASIS [None]
  - DUODENITIS [None]
  - GASTRITIS [None]
  - GASTROOESOPHAGEAL REFLUX DISEASE [None]
  - PANCREATITIS [None]
